FAERS Safety Report 20246911 (Version 1)
Quarter: 2021Q4

REPORT INFORMATION
  Report Type: Spontaneous
  Country: US (occurrence: US)
  Receive Date: 20211229
  Receipt Date: 20211229
  Transmission Date: 20220303
  Serious: Yes (Life-Threatening, Hospitalization, Other)
  Sender: FDA-Public Use
  Company Number: US-GLENMARK PHARMACEUTICALS-2021GMK069540

PATIENT
  Age: 55 Year
  Sex: Female

DRUGS (1)
  1. TOPIRAMATE [Suspect]
     Active Substance: TOPIRAMATE
     Indication: Myoclonus
     Dosage: UNK (DECREASE DOSE)
     Route: 065

REACTIONS (12)
  - Electrolyte imbalance [Unknown]
  - Hypernatraemia [Recovered/Resolved]
  - Osmotic demyelination syndrome [Recovering/Resolving]
  - Renal salt-wasting syndrome [Recovered/Resolved]
  - Hyposthenuria [Recovering/Resolving]
  - Hemiparesis [Recovering/Resolving]
  - Metabolic acidosis [Recovered/Resolved]
  - Renal tubular acidosis [Recovered/Resolved]
  - Hypotension [Unknown]
  - Hypokalaemia [Recovered/Resolved]
  - Encephalopathy [Recovering/Resolving]
  - Product use in unapproved indication [Unknown]
